FAERS Safety Report 7784006-0 (Version None)
Quarter: 2011Q3

REPORT INFORMATION
  Report Type: 
  Country: None (occurrence: None)
  Receive Date: 20110928
  Receipt Date: 20110915
  Transmission Date: 20111222
  Serious: Yes (Other)
  Sender: FDA-Public Use
  Company Number: CA-JNJFOC-20110909827

PATIENT
  Age: 55 Year
  Sex: Female
  Weight: 72.58 kg

DRUGS (3)
  1. NICODERM [Suspect]
     Indication: SMOKING CESSATION THERAPY
     Dosage: USE ONE PATCH ONE TIME
     Route: 061
     Dates: start: 20110901, end: 20110901
  2. ALL OTHER THERAPEUTIC DRUG [Concomitant]
     Indication: PRODUCT USED FOR UNKNOWN INDICATION
     Route: 065
  3. NICODERM [Suspect]
     Route: 061

REACTIONS (5)
  - BLISTER [None]
  - APPLICATION SITE PAIN [None]
  - APPLICATION SITE EROSION [None]
  - APPLICATION SITE VESICLES [None]
  - BURNING SENSATION [None]
